FAERS Safety Report 8017903-1 (Version None)
Quarter: 2012Q1

REPORT INFORMATION
  Report Type: 
  Country: None (occurrence: None)
  Receive Date: 20120103
  Receipt Date: 20111223
  Transmission Date: 20120608
  Serious: Yes (Other)
  Sender: FDA-Public Use
  Company Number: US-JNJFOC-20111211033

PATIENT
  Sex: Female
  Weight: 61.69 kg

DRUGS (2)
  1. REMICADE [Suspect]
     Indication: CROHN'S DISEASE
     Route: 042
     Dates: start: 20111201, end: 20111201
  2. RESTORIL [Concomitant]
     Indication: HYPERSOMNIA
     Route: 065
     Dates: start: 20110101

REACTIONS (1)
  - CEREBROVASCULAR ACCIDENT [None]
